FAERS Safety Report 5243970-4 (Version None)
Quarter: 2007Q1

REPORT INFORMATION
  Report Type: 
  Country: None (occurrence: None)
  Receive Date: 20070222
  Receipt Date: 20070212
  Transmission Date: 20070707
  Serious: Yes (Other)
  Sender: FDA-Public Use
  Company Number: PFIZER INC-2007012029

PATIENT
  Sex: Male
  Weight: 104.3 kg

DRUGS (5)
  1. LYRICA [Suspect]
     Indication: NEUROPATHY
  2. CYMBALTA [Concomitant]
  3. METOPROLOL SUCCINATE [Concomitant]
  4. LIPITOR [Concomitant]
  5. ACETYLSALICYLIC ACID SRT [Concomitant]

REACTIONS (11)
  - ANOREXIA [None]
  - ASTHENIA [None]
  - DIARRHOEA [None]
  - FATIGUE [None]
  - HYPERHIDROSIS [None]
  - HYPERVENTILATION [None]
  - LOSS OF CONTROL OF LEGS [None]
  - PYREXIA [None]
  - TREMOR [None]
  - VISION BLURRED [None]
  - WEIGHT DECREASED [None]
